FAERS Safety Report 12482829 (Version 1)
Quarter: 2016Q2

REPORT INFORMATION
  Report Type: Spontaneous
  Country: US (occurrence: US)
  Receive Date: 20160620
  Receipt Date: 20160620
  Transmission Date: 20160815
  Serious: No
  Sender: FDA-Public Use
  Company Number: US-ELI_LILLY_AND_COMPANY-US201606002360

PATIENT

DRUGS (2)
  1. AXIRON [Suspect]
     Active Substance: TESTOSTERONE
     Dosage: 60 MG (2 PUMPS), QD
     Dates: start: 2014
  2. AXIRON [Suspect]
     Active Substance: TESTOSTERONE
     Indication: BLOOD TESTOSTERONE DECREASED
     Dosage: 60 MG (2 PUMPS), QD
     Dates: start: 2014

REACTIONS (6)
  - Blood testosterone decreased [Unknown]
  - Headache [Unknown]
  - Hyperhidrosis [Unknown]
  - Fatigue [Unknown]
  - Incorrect dose administered [Unknown]
  - Anxiety [Unknown]
